FAERS Safety Report 4791291-6 (Version None)
Quarter: 2005Q4

REPORT INFORMATION
  Report Type: 
  Country: None (occurrence: None)
  Receive Date: 20051007
  Receipt Date: 20050515
  Transmission Date: 20060501
  Serious: Yes (Life-Threatening)
  Sender: FDA-Public Use
  Company Number: 2005AP03461

PATIENT
  Age: 17714 Day
  Sex: Female

DRUGS (4)
  1. NOLVADEX [Suspect]
     Indication: BREAST CANCER
     Route: 048
     Dates: start: 20041228, end: 20050105
  2. NOLVADEX [Suspect]
     Route: 048
     Dates: start: 20050120, end: 20050409
  3. CERCINE [Concomitant]
     Route: 048
  4. LORFENAMIN [Concomitant]
     Route: 048

REACTIONS (2)
  - DUODENAL ULCER [None]
  - PANCREATITIS [None]
